FAERS Safety Report 11105463 (Version 2)
Quarter: 2016Q1

REPORT INFORMATION
  Report Type: Spontaneous
  Country: US (occurrence: US)
  Receive Date: 20150512
  Receipt Date: 20160330
  Transmission Date: 20160525
  Serious: Yes (Other)
  Sender: FDA-Public Use
  Company Number: US-PFIZER INC-2015154236

PATIENT
  Age: 79 Year
  Sex: Female
  Weight: 77 kg

DRUGS (24)
  1. ULTRACET [Concomitant]
     Active Substance: ACETAMINOPHEN\TRAMADOL HYDROCHLORIDE
     Dosage: PARACETAMOL 325 MG, TRAMADOL HYDROCHLORIDE 37.5 MG) 2X/DAY
     Route: 048
  2. ANUSOL-HC /00028604/ [Concomitant]
     Dosage: PLACE RECTALLY 2 TIMES DAILY, AS NEEDED
     Route: 054
  3. LYRICA [Suspect]
     Active Substance: PREGABALIN
     Indication: NEUROPATHY PERIPHERAL
  4. NASONEX [Concomitant]
     Active Substance: MOMETASONE FUROATE
     Dosage: 100 ?G, 1X/DAY (2 SPRAYS BY NASAL ROUTE DAILY)
     Route: 045
  5. K-DUR [Concomitant]
     Active Substance: POTASSIUM CHLORIDE
     Dosage: 20 MEQ, 2X/DAY
     Route: 048
  6. NEXIUM [Concomitant]
     Active Substance: ESOMEPRAZOLE MAGNESIUM
     Dosage: 40 MG, 1X/DAY
     Route: 048
  7. HYDROCODONE BITARTRATE AND ACETAMINOPHEN [Concomitant]
     Active Substance: ACETAMINOPHEN\HYDROCODONE BITARTRATE
     Indication: PAIN
     Dosage: HYDROCODONE BITARTRATE 5 MG, PARACETAMOL 325 MG) AS NEEDED
     Route: 048
  8. SINGULAIR [Concomitant]
     Active Substance: MONTELUKAST SODIUM
     Dosage: 10 MG, 1X/DAY (1 TABLET BY MOUTH NIGHTLY)
     Route: 048
  9. LYRICA [Suspect]
     Active Substance: PREGABALIN
     Indication: LUMBAR RADICULOPATHY
     Dosage: 50 MG, 2X/DAY
     Route: 048
     Dates: start: 20160317
  10. FLEXERIL [Concomitant]
     Active Substance: CYCLOBENZAPRINE HYDROCHLORIDE
     Dosage: 10 MG, (1 TABLET BY MOUTH NIGHTLY FOR 90 DAYS)
     Route: 048
  11. LIPITOR [Suspect]
     Active Substance: ATORVASTATIN CALCIUM
     Dosage: 20 MG, 1X/DAY
     Route: 048
  12. PROLIA [Concomitant]
     Active Substance: DENOSUMAB
     Dosage: INJECT INTO THE SKIN EVERY 6 MONTHS
  13. LASIX [Concomitant]
     Active Substance: FUROSEMIDE
     Dosage: 20 MG, 1X/DAY
     Route: 048
  14. LEVOTHROID [Concomitant]
     Active Substance: LEVOTHYROXINE SODIUM
     Dosage: 100 ?G, 1X/DAY
     Route: 048
  15. PRINIVIL [Concomitant]
     Active Substance: LISINOPRIL
     Dosage: 10 MG, 1X/DAY
     Route: 048
  16. KLOR-CON [Concomitant]
     Active Substance: POTASSIUM CHLORIDE
     Dosage: 20 MEQ, 2X/DAY
     Route: 048
  17. COMPAZINE [Concomitant]
     Active Substance: PROCHLORPERAZINE MALEATE
     Indication: NAUSEA
     Dosage: 5 MG, 4X/DAY (1 TABLET BY MOUTH EVERY 6 HOURS AS NEEDED)
     Route: 048
  18. PLAQUENIL [Concomitant]
     Active Substance: HYDROXYCHLOROQUINE SULFATE
     Dosage: 200 MG, ALTERNATE DAY
     Route: 048
  19. SYNTHROID [Concomitant]
     Active Substance: LEVOTHYROXINE SODIUM
     Dosage: 100 ?G, 1X/DAY
     Route: 048
  20. LYRICA [Suspect]
     Active Substance: PREGABALIN
     Indication: FIBROMYALGIA
  21. INFLUENZA VACCINE [Concomitant]
     Active Substance: INFLUENZA VIRUS VACCINE
     Dosage: UNK
  22. LASIX [Concomitant]
     Active Substance: FUROSEMIDE
     Dosage: 20 MG, AS NEEDED
     Route: 048
  23. ZESTRIL [Concomitant]
     Active Substance: LISINOPRIL
     Dosage: 10 MG, 1X/DAY
     Route: 048
  24. TYLENOL [Concomitant]
     Active Substance: ACETAMINOPHEN
     Dosage: UNK
     Route: 048

REACTIONS (24)
  - Hypothyroidism [Unknown]
  - Rhinitis allergic [Unknown]
  - Gastrooesophageal reflux disease [Unknown]
  - Myalgia [Unknown]
  - Myositis [Unknown]
  - Osteoarthritis [Unknown]
  - Vertigo [Unknown]
  - Psoriasis [Unknown]
  - Nephrolithiasis [Unknown]
  - Systemic lupus erythematosus [Unknown]
  - Lymphoma [Unknown]
  - Depression [Unknown]
  - Dizziness [Unknown]
  - Intervertebral disc disorder [Unknown]
  - Osteoporosis [Unknown]
  - Connective tissue disorder [Unknown]
  - Joint dislocation [Unknown]
  - Pain in extremity [Unknown]
  - Drug ineffective [Unknown]
  - Asthenia [Unknown]
  - Headache [Unknown]
  - Gait disturbance [Unknown]
  - Hyperlipidaemia [Unknown]
  - Rhinitis atrophic [Unknown]
